FAERS Safety Report 21802086 (Version 1)
Quarter: 2022Q4

REPORT INFORMATION
  Report Type: Report from Study
  Country: US (occurrence: US)
  Receive Date: 20221230
  Receipt Date: 20221230
  Transmission Date: 20230112
  Serious: No
  Sender: FDA-Public Use
  Company Number: US-ACORDA-ACO_172311_2022

PATIENT
  Sex: Female

DRUGS (2)
  1. INBRIJA [Suspect]
     Active Substance: LEVODOPA
     Indication: Parkinson^s disease
     Dosage: 2 DOSAGE FORM, PRN (NOT TO EXCEED 5 DOSES PER DAY)
     Dates: start: 20201217
  2. INBRIJA [Suspect]
     Active Substance: LEVODOPA
     Indication: On and off phenomenon
     Dosage: 2 DOSAGE FORM, PRN (NOT TO EXCEED 5 DOSES PER DAY)
     Dates: start: 20201217

REACTIONS (5)
  - Product physical issue [Unknown]
  - Urinary tract infection [Unknown]
  - Parkinson^s disease [Unknown]
  - Dyspnoea [Unknown]
  - Somnolence [Not Recovered/Not Resolved]
